FAERS Safety Report 7718309-2 (Version None)
Quarter: 2011Q3

REPORT INFORMATION
  Report Type: 
  Country: None (occurrence: None)
  Receive Date: 20110830
  Receipt Date: 20110825
  Transmission Date: 20111222
  Serious: No
  Sender: FDA-Public Use
  Company Number: US-PFIZER INC-2011198176

PATIENT
  Age: 79 Year
  Sex: Female

DRUGS (10)
  1. ADVIL LIQUI-GELS [Suspect]
     Indication: ARTHRITIS
  2. MOBIC [Suspect]
     Indication: OSTEOPOROSIS
     Dosage: UNK
     Dates: start: 20110101, end: 20110101
  3. NAPROSYN [Suspect]
     Dosage: UNK
  4. ADVIL LIQUI-GELS [Suspect]
     Indication: OSTEOPOROSIS
     Dosage: 400 MG, 2X/DAY
  5. IBUPROFEN [Suspect]
     Indication: INFLAMMATION
  6. INDOCIN [Suspect]
     Dosage: UNK
  7. IBUPROFEN [Suspect]
     Indication: MYALGIA
     Dosage: 800 MG, UNK
  8. ADVIL LIQUI-GELS [Suspect]
     Indication: MYALGIA
  9. ADVIL LIQUI-GELS [Suspect]
     Indication: ARTHROPATHY
  10. MOBIC [Suspect]
     Indication: ARTHRITIS

REACTIONS (2)
  - ABDOMINAL DISCOMFORT [None]
  - DRUG INEFFECTIVE [None]
